FAERS Safety Report 6390889-1 (Version None)
Quarter: 2009Q4

REPORT INFORMATION
  Report Type: 
  Country: None (occurrence: None)
  Receive Date: 20091003
  Receipt Date: 20090922
  Transmission Date: 20100525
  Serious: No
  Sender: FDA-Public Use
  Company Number: B0595529A

PATIENT
  Sex: Female

DRUGS (1)
  1. SALBUTAMOL SULPHATE (FORMULATION UNKNOWN) (ALBUTEROL SULFATE) [Suspect]
     Indication: ASTHMA

REACTIONS (6)
  - ASTHMA [None]
  - CAESAREAN SECTION [None]
  - CONDITION AGGRAVATED [None]
  - DRUG EXPOSURE DURING PREGNANCY [None]
  - FOETAL DISTRESS SYNDROME [None]
  - GENERAL PHYSICAL HEALTH DETERIORATION [None]
